FAERS Safety Report 5717812-4 (Version None)
Quarter: 2008Q2

REPORT INFORMATION
  Report Type: 
  Country: None (occurrence: None)
  Receive Date: 20080425
  Receipt Date: 20080415
  Transmission Date: 20081010
  Serious: Yes (Hospitalization)
  Sender: FDA-Public Use
  Company Number: US-AVENTIS-200811767EU

PATIENT
  Age: 72 Year
  Sex: Female

DRUGS (1)
  1. NITROGLYCERIN [Suspect]
     Indication: CARDIAC DISORDER
     Dosage: DOSE: UNK

REACTIONS (4)
  - ATRIAL FIBRILLATION [None]
  - BUNDLE BRANCH BLOCK RIGHT [None]
  - DIZZINESS [None]
  - HYPOTENSION [None]
